FAERS Safety Report 10028124 (Version 3)
Quarter: 2014Q2

REPORT INFORMATION
  Report Type: Spontaneous
  Country: US (occurrence: US)
  Receive Date: 20140321
  Receipt Date: 20140407
  Transmission Date: 20141212
  Serious: Yes (Other)
  Sender: FDA-Public Use
  Company Number: US-009507513-1403USA008991

PATIENT
  Age: 82 Year
  Sex: Male

DRUGS (1)
  1. TICE BCG LIVE [Suspect]

REACTIONS (4)
  - Bladder cancer [Unknown]
  - Tuberculin test positive [Unknown]
  - Bladder neoplasm surgery [Unknown]
  - Drug administration error [Unknown]
